FAERS Safety Report 14046483 (Version 7)
Quarter: 2018Q2

REPORT INFORMATION
  Report Type: Spontaneous
  Country: US (occurrence: US)
  Receive Date: 20171005
  Receipt Date: 20180420
  Transmission Date: 20180711
  Serious: Yes (Hospitalization, Other)
  Sender: FDA-Public Use
  Company Number: US-ACTELION-A-US2017-160412

PATIENT
  Age: 66 Year
  Sex: Female

DRUGS (5)
  1. ELIQUIS [Suspect]
     Active Substance: APIXABAN
     Indication: PRODUCT USED FOR UNKNOWN INDICATION
     Route: 065
  2. ADEMPAS [Concomitant]
     Active Substance: RIOCIGUAT
     Dosage: 1.5 MG, TID
     Route: 048
     Dates: start: 20180328, end: 20180410
  3. XARELTO [Suspect]
     Active Substance: RIVAROXABAN
     Indication: PRODUCT USED FOR UNKNOWN INDICATION
     Route: 048
  4. ADEMPAS [Concomitant]
     Active Substance: RIOCIGUAT
     Dosage: 1 MG, TID
     Dates: start: 20170411
  5. OPSUMIT [Suspect]
     Active Substance: MACITENTAN
     Indication: PULMONARY ARTERIAL HYPERTENSION
     Dosage: 10 MG, QD
     Route: 048
     Dates: start: 20170408

REACTIONS (20)
  - Rectal haemorrhage [Not Recovered/Not Resolved]
  - Haemoglobin decreased [Recovered/Resolved]
  - Headache [Not Recovered/Not Resolved]
  - Rectal cancer [Unknown]
  - Dehydration [Not Recovered/Not Resolved]
  - Arteriovenous malformation [Recovered/Resolved]
  - Haemorrhoids [Recovered/Resolved]
  - Anaemia [Recovered/Resolved]
  - Hypotension [Not Recovered/Not Resolved]
  - Clostridium difficile colitis [Recovered/Resolved]
  - Vomiting [Recovered/Resolved]
  - Nausea [Not Recovered/Not Resolved]
  - Anal cancer [Unknown]
  - Lung infiltration [Recovered/Resolved]
  - Transfusion [Recovered/Resolved]
  - Atrial flutter [Unknown]
  - Diarrhoea [Recovered/Resolved]
  - Abdominal pain [Recovered/Resolved]
  - Gastrointestinal haemorrhage [Recovered/Resolved]
  - Fatigue [Recovered/Resolved]

NARRATIVE: CASE EVENT DATE: 201708
